FAERS Safety Report 7157531-3 (Version None)
Quarter: 2010Q4

REPORT INFORMATION
  Report Type: 
  Country: None (occurrence: None)
  Receive Date: 20101214
  Receipt Date: 20100219
  Transmission Date: 20110411
  Serious: No
  Sender: FDA-Public Use
  Company Number: US-ASTRAZENECA-2010SE07309

PATIENT
  Age: 71 Year
  Sex: Female
  Weight: 56.7 kg

DRUGS (8)
  1. CRESTOR [Suspect]
     Indication: BLOOD CHOLESTEROL
     Route: 048
     Dates: start: 20091001
  2. CELEBREX [Concomitant]
     Indication: ARTHRITIS
  3. INDERAL [Concomitant]
     Indication: MIGRAINE
  4. INDERAL [Concomitant]
     Indication: HYPERTENSION
  5. LISINOPRIL [Concomitant]
     Indication: HYPERTENSION
  6. OMEPRAZOLE [Concomitant]
     Indication: GASTROOESOPHAGEAL REFLUX DISEASE
  7. PREMARIN [Concomitant]
     Indication: BLOOD OESTROGEN
  8. SPIRONOLACTONE [Concomitant]
     Indication: ALOPECIA

REACTIONS (2)
  - HIGH DENSITY LIPOPROTEIN DECREASED [None]
  - PERIPHERAL COLDNESS [None]
